FAERS Safety Report 15465387 (Version 1)
Quarter: 2018Q4

REPORT INFORMATION
  Report Type: Spontaneous
  Country: US (occurrence: US)
  Receive Date: 20181004
  Receipt Date: 20181004
  Transmission Date: 20190204
  Serious: Yes (Other)
  Sender: FDA-Public Use
  Company Number: US-BAYER-2018-183697

PATIENT
  Age: 82 Year
  Sex: Female
  Weight: 70.3 kg

DRUGS (3)
  1. WARFARIN [Concomitant]
     Active Substance: WARFARIN
     Dosage: UNK
  2. MIRALAX [Suspect]
     Active Substance: POLYETHYLENE GLYCOL 3350
     Indication: ABNORMAL FAECES
     Dosage: 1 FULL CAPFUL FOR A WEEK,
     Route: 048
     Dates: start: 2018
  3. MIRALAX [Suspect]
     Active Substance: POLYETHYLENE GLYCOL 3350
     Indication: ABNORMAL FAECES
     Dosage: UNK UNK, QOD
     Route: 048
     Dates: start: 20181001

REACTIONS (5)
  - Muscle spasms [Unknown]
  - Pain [Unknown]
  - Off label use [None]
  - Product use in unapproved indication [None]
  - Rectal haemorrhage [Unknown]

NARRATIVE: CASE EVENT DATE: 2018
